FAERS Safety Report 5300374-3 (Version None)
Quarter: 2007Q2

REPORT INFORMATION
  Report Type: 
  Country: None (occurrence: None)
  Receive Date: 20070413
  Receipt Date: 20070413
  Transmission Date: 20071010
  Serious: Yes (Hospitalization)
  Sender: FDA-Public Use
  Company Number: None

PATIENT
  Age: 61 Year
  Sex: Female
  Weight: 87.7 kg

DRUGS (1)
  1. SULFADIAZINE [Suspect]
     Indication: TOXOPLASMOSIS
     Dosage: 1500 MG  Q6H   PO
     Route: 048
     Dates: start: 20061121, end: 20061130

REACTIONS (2)
  - TOXIC EPIDERMAL NECROLYSIS [None]
  - VOMITING [None]
